FAERS Safety Report 7460393-8 (Version None)
Quarter: 2011Q2

REPORT INFORMATION
  Report Type: 
  Country: None (occurrence: None)
  Receive Date: 20110505
  Receipt Date: 20110429
  Transmission Date: 20111010
  Serious: Yes (Death)
  Sender: FDA-Public Use
  Company Number: A0925025A

PATIENT
  Sex: Female

DRUGS (2)
  1. PROMACTA [Suspect]
     Indication: MYELODYSPLASTIC SYNDROME
     Dosage: 25MG PER DAY
     Dates: start: 20110106, end: 20110317
  2. CORTICOSTEROIDS [Concomitant]

REACTIONS (4)
  - DRUG INEFFECTIVE [None]
  - MYELODYSPLASTIC SYNDROME [None]
  - DISEASE PROGRESSION [None]
  - ACUTE MYELOID LEUKAEMIA [None]
